FAERS Safety Report 5635641-7 (Version None)
Quarter: 2008Q1

REPORT INFORMATION
  Report Type: 
  Country: None (occurrence: None)
  Receive Date: 20080220
  Receipt Date: 20080206
  Transmission Date: 20080703
  Serious: Yes (Other)
  Sender: FDA-Public Use
  Company Number: B0508304A

PATIENT
  Age: 83 Year
  Sex: Female

DRUGS (6)
  1. ROPINIROLE HYDROCHLORIDE TABLET (ROPINIROLE HCL) [Suspect]
     Indication: PARKINSON'S DISEASE
     Dosage: 2 MG / PER DAY / ORAL
     Route: 048
  2. CO-CARELDOPA TABLET (CO-CARELDOPA) [Suspect]
     Indication: PARKINSON'S DISEASE
     Dosage: FOUR TIMES PER DAY / ORAL
     Route: 048
  3. OXYBUTYNIN CHLORIDE [Concomitant]
  4. ASPIRIN [Concomitant]
  5. OMEPRAZOLE [Concomitant]
  6. TELMISARTAN [Concomitant]

REACTIONS (7)
  - BUNDLE BRANCH BLOCK RIGHT [None]
  - CARDIAC MURMUR [None]
  - CARDIOMEGALY [None]
  - CONFUSIONAL STATE [None]
  - DEPRESSED LEVEL OF CONSCIOUSNESS [None]
  - ORTHOSTATIC HYPOTENSION [None]
  - SYNCOPE [None]
